FAERS Safety Report 5351895-9 (Version None)
Quarter: 2007Q2

REPORT INFORMATION
  Report Type: 
  Country: None (occurrence: None)
  Receive Date: 20070609
  Receipt Date: 20070530
  Transmission Date: 20071010
  Serious: Yes (Life-Threatening)
  Sender: FDA-Public Use
  Company Number: ES-ABBOTT-07P-144-0369986-00

PATIENT
  Age: 52 Year
  Sex: Female

DRUGS (2)
  1. HUMIRA [Suspect]
     Indication: ARTHRITIS
     Route: 058
     Dates: start: 20060115, end: 20060315
  2. LEFLUNOMIDE [Suspect]
     Indication: ARTHRITIS
     Route: 048
     Dates: start: 20060115, end: 20060325

REACTIONS (3)
  - DIARRHOEA [None]
  - NAUSEA [None]
  - VOMITING [None]
